FAERS Safety Report 6885476-2 (Version None)
Quarter: 2010Q3

REPORT INFORMATION
  Report Type: 
  Country: None (occurrence: None)
  Receive Date: 20100729
  Receipt Date: 20080404
  Transmission Date: 20110219
  Serious: No
  Sender: FDA-Public Use
  Company Number: US-PFIZER INC-2008015782

PATIENT
  Sex: Female
  Weight: 59 kg

DRUGS (2)
  1. CELEBREX [Suspect]
     Indication: PAIN
     Route: 048
     Dates: start: 20080208, end: 20080209
  2. ALEVE (CAPLET) [Concomitant]

REACTIONS (2)
  - EPISTAXIS [None]
  - HAEMORRHAGE [None]
